FAERS Safety Report 8785573 (Version 1)
Quarter: 2012Q4

REPORT INFORMATION
  Report Type: 
  Country: IL (occurrence: IL)
  Receive Date: 20120914
  Receipt Date: 20120914
  Transmission Date: 20130627
  Serious: Yes (Hospitalization, Other)
  Sender: FDA-Public Use
  Company Number: IL-JHP PHARMACEUTICALS, LLC-JHP201200461

PATIENT
  Age: 28 Year
  Sex: Female

DRUGS (7)
  1. KETALAR [Suspect]
     Dosage: 25 mg, UNK
     Route: 042
  2. PROPOFOL [Suspect]
     Dosage: 100 mg, UNK
     Route: 042
  3. BUPIVACAINE [Suspect]
     Dosage: 8 mg intraspinal
     Route: 037
  4. MORPHINE [Suspect]
     Dosage: 0.15 mg intraspinal
     Route: 037
  5. MIDAZOLAM [Concomitant]
     Dosage: 1 mg, UNK
  6. OXYTOCIN [Concomitant]
     Dosage: 10 IU, in 1,000 mL Ringer Lactate
  7. CEFAZOLINE [Concomitant]
     Dosage: 1 g, UNK

REACTIONS (3)
  - Myoclonus [Recovered/Resolved]
  - Drug interaction [Recovered/Resolved]
  - Exposure during pregnancy [Recovered/Resolved]
